FAERS Safety Report 6019567-5 (Version None)
Quarter: 2008Q4

REPORT INFORMATION
  Report Type: 
  Country: None (occurrence: None)
  Receive Date: 20081224
  Receipt Date: 20081215
  Transmission Date: 20090506
  Serious: Yes (Other)
  Sender: FDA-Public Use
  Company Number: PHNU2008DE01895

PATIENT

DRUGS (1)
  1. PROVAS COMP [Suspect]

REACTIONS (2)
  - HYPERCALCAEMIA [None]
  - HYPERPARATHYROIDISM [None]
